FAERS Safety Report 7095916-4 (Version None)
Quarter: 2010Q4

REPORT INFORMATION
  Report Type: 
  Country: None (occurrence: None)
  Receive Date: 20101111
  Receipt Date: 20090401
  Transmission Date: 20110411
  Serious: No
  Sender: FDA-Public Use
  Company Number: US-KINGPHARMUSA00001-K200900375

PATIENT
  Sex: Male

DRUGS (3)
  1. SKELAXIN [Suspect]
     Indication: PAIN
     Dosage: 800 MG, SINGLE
     Route: 048
     Dates: start: 20090331, end: 20090331
  2. NEXIUM [Concomitant]
     Dosage: UNK
     Route: 048
  3. ANTIHYPERTENSIVES [Concomitant]
     Indication: HYPERTENSION
     Dosage: UNK
     Route: 048

REACTIONS (3)
  - DYSPNOEA [None]
  - HEART RATE INCREASED [None]
  - INSOMNIA [None]
